FAERS Safety Report 9785429 (Version 1)
Quarter: 2013Q4

REPORT INFORMATION
  Report Type: Spontaneous
  Country: US (occurrence: None)
  Receive Date: 20131226
  Receipt Date: 20131226
  Transmission Date: 20140711
  Serious: Yes (Disabling)
  Sender: FDA-Public Use
  Company Number: None

PATIENT
  Age: 52 Year
  Sex: Female
  Weight: 89.81 kg

DRUGS (9)
  1. INVEGA [Suspect]
     Indication: HALLUCINATION, VISUAL
     Dosage: NOBODY TOLD ME ?12TH 1ST INJECT?19TH 2ND INJECT?ONCE ?INJECTION
     Dates: start: 20130912, end: 20130919
  2. INVEGA [Suspect]
     Indication: HALLUCINATION, AUDITORY
     Dosage: NOBODY TOLD ME ?12TH 1ST INJECT?19TH 2ND INJECT?ONCE ?INJECTION
     Dates: start: 20130912, end: 20130919
  3. KLONOPAN [Concomitant]
  4. LITHIUM [Concomitant]
  5. PROPRANOLOL [Concomitant]
  6. NEXIUM [Concomitant]
  7. ARZANT [Concomitant]
  8. MELINTONIN [Concomitant]
  9. AMYLOPIDINE [Concomitant]

REACTIONS (8)
  - Depression [None]
  - Crying [None]
  - Decreased appetite [None]
  - Lethargy [None]
  - Gait disturbance [None]
  - Muscular weakness [None]
  - Hypersomnia [None]
  - Bradyphrenia [None]
